FAERS Safety Report 15112411 (Version 3)
Quarter: 2018Q4

REPORT INFORMATION
  Report Type: Report from Study
  Country: EG (occurrence: EG)
  Receive Date: 20180705
  Receipt Date: 20181016
  Transmission Date: 20190204
  Serious: Yes (Other)
  Sender: FDA-Public Use
  Company Number: EG-APOPHARMA USA, INC.-2018AP016714

PATIENT
  Age: 26 Year
  Sex: Male
  Weight: 49 kg

DRUGS (4)
  1. DEFERIPRONE [Suspect]
     Active Substance: DEFERIPRONE
     Indication: HAEMOSIDEROSIS
     Dosage: 33 MG/KG, TID
     Route: 048
     Dates: start: 20160703, end: 20180625
  2. DECAL B12 [Concomitant]
     Indication: OSTEOPOROSIS PROPHYLAXIS
     Dosage: 5 ML, QD
     Route: 048
     Dates: start: 19930115
  3. FOLIC ACID. [Concomitant]
     Active Substance: FOLIC ACID
     Indication: ANAEMIA MEGALOBLASTIC
     Dosage: 5 MG, QD
     Route: 048
     Dates: start: 19930115
  4. DEFERIPRONE [Suspect]
     Active Substance: DEFERIPRONE
     Indication: HEREDITARY SPHEROCYTOSIS

REACTIONS (1)
  - Agranulocytosis [Recovered/Resolved]

NARRATIVE: CASE EVENT DATE: 20180627
